FAERS Safety Report 26135060 (Version 1)
Quarter: 2025Q4

REPORT INFORMATION
  Report Type: Spontaneous
  Country: US (occurrence: None)
  Receive Date: 20251208
  Receipt Date: 20251208
  Transmission Date: 20260117
  Serious: Yes (Disabling)
  Sender: FDA-CTU
  Company Number: None

PATIENT

DRUGS (1)
  1. FLAGYL [Suspect]
     Active Substance: METRONIDAZOLE\METRONIDAZOLE HYDROCHLORIDE
     Indication: Bacterial vaginosis
     Dosage: 1 CAPSULE(S) TWICE A DAY ORAL
     Route: 048
     Dates: start: 20250927, end: 20250928

REACTIONS (14)
  - Insomnia [None]
  - Irritability [None]
  - Therapy cessation [None]
  - Panic attack [None]
  - Heart rate increased [None]
  - Gastrooesophageal reflux disease [None]
  - Dysphagia [None]
  - Diarrhoea [None]
  - Paraesthesia [None]
  - Tremor [None]
  - Muscle twitching [None]
  - Anxiety [None]
  - Depression [None]
  - Job dissatisfaction [None]

NARRATIVE: CASE EVENT DATE: 20250928
